FAERS Safety Report 25384132 (Version 2)
Quarter: 2025Q2

REPORT INFORMATION
  Report Type: Report from Study
  Country: US (occurrence: US)
  Receive Date: 20250602
  Receipt Date: 20250624
  Transmission Date: 20250716
  Serious: No
  Sender: SUNOVION
  Company Number: US-SMPA-2025SPA005748AA

PATIENT

DRUGS (11)
  1. ORGOVYX [Suspect]
     Active Substance: RELUGOLIX
     Indication: Prostate cancer
     Dosage: 360 MG, SINGLE
     Route: 048
     Dates: start: 20250206, end: 20250206
  2. ORGOVYX [Suspect]
     Active Substance: RELUGOLIX
     Dosage: 120 MG, QD
     Route: 048
     Dates: start: 20250207
  3. ABIRATERONE [Concomitant]
     Active Substance: ABIRATERONE
     Route: 065
  4. ALLOPURINOL [Concomitant]
     Active Substance: ALLOPURINOL
     Route: 065
  5. DONEPEZIL [Concomitant]
     Active Substance: DONEPEZIL
     Route: 065
  6. VITAMIN D3 [Concomitant]
     Active Substance: CHOLECALCIFEROL
  7. LOSARTAN [Concomitant]
     Active Substance: LOSARTAN
  8. MEMANTINE [Concomitant]
     Active Substance: MEMANTINE
     Route: 065
  9. PREDNISONE [Concomitant]
     Active Substance: PREDNISONE
  10. VITAMIN B12 [Concomitant]
     Active Substance: CYANOCOBALAMIN
  11. ESOMEPRAZOLE MAGNESIUM [Concomitant]
     Active Substance: ESOMEPRAZOLE MAGNESIUM
     Route: 065

REACTIONS (8)
  - Pollakiuria [Unknown]
  - Decreased appetite [Unknown]
  - Urinary incontinence [Unknown]
  - Balance disorder [Unknown]
  - Bradykinesia [Unknown]
  - Fatigue [Unknown]
  - Product dose omission issue [Unknown]
  - Product delivery mechanism issue [Unknown]
